FAERS Safety Report 4615122-X (Version None)
Quarter: 2005Q1

REPORT INFORMATION
  Report Type: 
  Country: None (occurrence: None)
  Receive Date: 20050322
  Receipt Date: 20050208
  Transmission Date: 20050727
  Serious: Yes (Life-Threatening, Hospitalization, Other)
  Sender: FDA-Public Use
  Company Number: US-GLAXOSMITHKLINE-A0544549A

PATIENT
  Age: 43 Year
  Sex: Male

DRUGS (6)
  1. EPZICOM [Suspect]
     Indication: HIV INFECTION
     Route: 048
     Dates: end: 20050203
  2. TOPROL-XL [Concomitant]
  3. REYATAZ [Concomitant]
  4. WELLBUTRIN [Concomitant]
  5. NORVIR [Concomitant]
  6. NORVASC [Concomitant]

REACTIONS (10)
  - ABDOMINAL PAIN [None]
  - BACK PAIN [None]
  - BRONCHOSPASM [None]
  - DYSPNOEA [None]
  - HEADACHE [None]
  - HYPOTENSION [None]
  - MYALGIA [None]
  - NAUSEA [None]
  - PYREXIA [None]
  - RASH [None]
